FAERS Safety Report 5275154-8 (Version None)
Quarter: 2007Q1

REPORT INFORMATION
  Report Type: 
  Country: None (occurrence: None)
  Receive Date: 20070326
  Receipt Date: 20070313
  Transmission Date: 20070707
  Serious: Yes (Other)
  Sender: FDA-Public Use
  Company Number: US-NOVOPROD-261623

PATIENT
  Age: 66 Year
  Sex: Female
  Weight: 73.469 kg

DRUGS (5)
  1. NOVOLOG [Suspect]
     Indication: DIABETES MELLITUS INSULIN-DEPENDENT
     Dosage: .8-.9 BASAL RATE/HOUR
     Route: 058
     Dates: start: 20060101
  2. NOVOLOG [Suspect]
     Route: 058
     Dates: start: 20060101
  3. PRINIVIL [Concomitant]
     Indication: BLOOD PRESSURE INCREASED
     Route: 048
  4. CATAPRES                           /00171101/ [Concomitant]
     Indication: BLOOD PRESSURE INCREASED
     Route: 048
  5. B12 [Concomitant]
     Indication: PERNICIOUS ANAEMIA
     Route: 048

REACTIONS (3)
  - BLOOD GLUCOSE INCREASED [None]
  - CHEST DISCOMFORT [None]
  - DEHYDRATION [None]
